FAERS Safety Report 8962316 (Version 1)
Quarter: 2012Q4

REPORT INFORMATION
  Report Type: Spontaneous
  Country: IN (occurrence: None)
  Receive Date: 20121203
  Receipt Date: 20121203
  Transmission Date: 20130627
  Serious: Yes (Other)
  Sender: FDA-Public Use
  Company Number: 2012-01718

PATIENT
  Age: 4 Year
  Sex: Male

DRUGS (6)
  1. ETHAMBUTOL [Suspect]
     Indication: TB MENINGITIS
  2. ISONIAZID [Suspect]
  3. RIFAMPICIN [Suspect]
  4. PYRAZINAMIDE [Suspect]
  5. CIPROFLOXACIN [Suspect]
  6. STREPTOMYCIN [Suspect]

REACTIONS (4)
  - Diabetes insipidus [None]
  - Optic atrophy [None]
  - Hydrocephalus [None]
  - Tuberculoma of central nervous system [None]
